FAERS Safety Report 25542614 (Version 3)
Quarter: 2025Q3

REPORT INFORMATION
  Report Type: Report from Study
  Country: AR (occurrence: AR)
  Receive Date: 20250711
  Receipt Date: 20250807
  Transmission Date: 20251020
  Serious: Yes (Other)
  Sender: TAKEDA
  Company Number: AR-TAKEDA-2025TUS062289

PATIENT
  Age: 66 Year
  Sex: Male

DRUGS (2)
  1. VELAGLUCERASE ALFA [Suspect]
     Active Substance: VELAGLUCERASE ALFA
     Indication: Product used for unknown indication
     Dosage: 5200 INTERNATIONAL UNIT, Q2WEEKS
     Dates: start: 20180815
  2. VELAGLUCERASE ALFA [Suspect]
     Active Substance: VELAGLUCERASE ALFA
     Dosage: 5200 INTERNATIONAL UNIT, Q2WEEKS

REACTIONS (4)
  - Hyperferritinaemia [Recovering/Resolving]
  - Serum ferritin increased [Recovering/Resolving]
  - Serum ferritin decreased [Unknown]
  - Fatigue [Recovered/Resolved]

NARRATIVE: CASE EVENT DATE: 20250730
